FAERS Safety Report 5170626-9 (Version None)
Quarter: 2006Q4

REPORT INFORMATION
  Report Type: 
  Country: None (occurrence: None)
  Receive Date: 20061205
  Receipt Date: 20061122
  Transmission Date: 20070319
  Serious: Yes (Other)
  Sender: FDA-Public Use
  Company Number: 2006145119

PATIENT
  Age: 67 Year
  Sex: Female

DRUGS (2)
  1. DILANTIN [Suspect]
     Dosage: ORAL
     Route: 048
     Dates: start: 20061114, end: 20061116
  2. ALL OTHER THERAPEUTIC PRODUCTS (ALL OTHER THERAPEUTIC PRODUCTS) [Concomitant]

REACTIONS (6)
  - CHROMATURIA [None]
  - DOCUMENTED HYPERSENSITIVITY TO ADMINISTERED DRUG [None]
  - DRUG HYPERSENSITIVITY [None]
  - DYSARTHRIA [None]
  - MUSCLE SPASMS [None]
  - SWELLING [None]
